FAERS Safety Report 13479080 (Version 1)
Quarter: 2017Q2

REPORT INFORMATION
  Report Type: Spontaneous
  Country: US (occurrence: US)
  Receive Date: 20170425
  Receipt Date: 20170425
  Transmission Date: 20170830
  Serious: No
  Sender: FDA-Public Use
  Company Number: US-TARO-2017TAR00211

PATIENT
  Sex: Female
  Weight: 98.87 kg

DRUGS (4)
  1. NAFTIFINE HYDROCHLORIDE CREAM USP 2% [Suspect]
     Active Substance: NAFTIFINE HYDROCHLORIDE
     Indication: FUNGAL INFECTION
     Dosage: 1 DOSAGE UNITS, 2X/DAY
     Route: 061
     Dates: start: 20170314
  2. KOMBIGLYZE XR [Concomitant]
     Active Substance: METFORMIN HYDROCHLORIDE\SAXAGLIPTIN HYDROCHLORIDE
  3. METOPROLOL. [Concomitant]
     Active Substance: METOPROLOL
  4. HUMALOG MIX 50/50 [Concomitant]

REACTIONS (2)
  - Blood glucose increased [Not Recovered/Not Resolved]
  - Blood glucose fluctuation [Not Recovered/Not Resolved]

NARRATIVE: CASE EVENT DATE: 2017
